FAERS Safety Report 9361992 (Version 2)
Quarter: 2013Q2

REPORT INFORMATION
  Report Type: Spontaneous
  Country: US (occurrence: US)
  Receive Date: 20130621
  Receipt Date: 20130625
  Transmission Date: 20140414
  Serious: No
  Sender: FDA-Public Use
  Company Number: US-009507513-1306USA009203

PATIENT
  Age: 77 Year
  Sex: Female

DRUGS (1)
  1. DULERA [Suspect]
     Dosage: 2 INHALATIONS TWICE A DAY, 1 STANDARD PACKAGE AER W/ADAP OF 8. 8
     Route: 055
     Dates: start: 201306

REACTIONS (3)
  - Drug dose omission [Unknown]
  - Product quality issue [Unknown]
  - No adverse event [Unknown]
